FAERS Safety Report 8665778 (Version 2)
Quarter: 2012Q4

REPORT INFORMATION
  Report Type: 
  Country: US (occurrence: US)
  Receive Date: 20120716
  Receipt Date: 20120828
  Transmission Date: 20130627
  Serious: Yes (Other)
  Sender: FDA-Public Use
  Company Number: US-PFIZER INC-2012169704

PATIENT
  Age: 63 Year
  Sex: Female
  Weight: 90.7 kg

DRUGS (4)
  1. EFFEXOR [Suspect]
     Indication: PANIC ATTACK
     Dosage: 150 mg, daily
  2. PRAVASTATIN [Concomitant]
     Indication: BLOOD CHOLESTEROL ABNORMAL
     Dosage: UNK
  3. MOBIC [Concomitant]
     Dosage: UNK
  4. METFORMIN [Concomitant]
     Indication: BLOOD GLUCOSE ABNORMAL
     Dosage: UNK

REACTIONS (1)
  - Weight increased [Unknown]
